FAERS Safety Report 6223877-6 (Version None)
Quarter: 2009Q2

REPORT INFORMATION
  Report Type: 
  Country: None (occurrence: None)
  Receive Date: 20090611
  Receipt Date: 20090415
  Transmission Date: 20091009
  Serious: No
  Sender: FDA-Public Use
  Company Number: US-ABBOTT-09P-163-0560516-00

PATIENT
  Sex: Female
  Weight: 145.28 kg

DRUGS (22)
  1. HUMIRA [Suspect]
     Indication: PSORIATIC ARTHROPATHY
     Dates: start: 20081201, end: 20090303
  2. PRILOSEC [Concomitant]
     Indication: GASTROOESOPHAGEAL REFLUX DISEASE
     Route: 048
  3. TRIAMTERENE AND HYDROCHLOROTHIAZIDE [Concomitant]
     Indication: OEDEMA
     Dosage: 75/50 1/2 QD
     Route: 048
  4. TRIAMTERENE AND HYDROCHLOROTHIAZIDE [Concomitant]
     Indication: BLOOD PRESSURE
  5. NORVASC [Concomitant]
     Indication: HYPERTENSION
     Route: 048
  6. LASIX [Concomitant]
     Indication: OEDEMA
     Route: 048
  7. POTASSIUM CHLORIDE [Concomitant]
     Indication: ELECTROLYTE SUBSTITUTION THERAPY
     Route: 048
  8. COMBIVENT [Concomitant]
     Indication: ASTHMA
     Route: 055
  9. ASPIRIN [Concomitant]
     Indication: BLOOD CHOLESTEROL INCREASED
     Route: 048
  10. ASPIRIN [Concomitant]
     Indication: BLOOD PRESSURE
  11. FISH OIL CAPLET [Concomitant]
     Indication: BLOOD CHOLESTEROL
     Route: 048
  12. MULTI-VITAMIN [Concomitant]
     Indication: VITAMIN SUPPLEMENTATION
     Route: 048
  13. ATIVAN [Concomitant]
     Indication: ANXIETY
     Route: 048
  14. CELEXA [Concomitant]
     Indication: DEPRESSION
     Route: 048
  15. REMERON [Concomitant]
     Indication: DEPRESSION
     Route: 048
  16. PREMPRO [Concomitant]
     Indication: MENOPAUSE
     Dosage: 0.45/1.5
     Route: 048
  17. PREMPRO [Concomitant]
     Indication: HORMONE REPLACEMENT THERAPY
  18. VICODIN [Concomitant]
     Indication: ARTHRALGIA
     Route: 048
  19. VICODIN [Concomitant]
  20. VICODIN [Concomitant]
     Indication: FIBROMYALGIA
  21. SOMA [Concomitant]
     Indication: MUSCLE RELAXANT THERAPY
  22. SOMA [Concomitant]
     Indication: FIBROMYALGIA

REACTIONS (6)
  - ANOREXIA [None]
  - DIARRHOEA [None]
  - DRUG INEFFECTIVE [None]
  - PSORIASIS [None]
  - RED BLOOD CELL SEDIMENTATION RATE INCREASED [None]
  - SWELLING [None]
